APPROVED DRUG PRODUCT: ERYTHROMYCIN
Active Ingredient: ERYTHROMYCIN
Strength: 0.5%
Dosage Form/Route: OINTMENT;OPHTHALMIC
Application: A064030 | Product #001 | TE Code: AT
Applicant: SENTISS AG
Approved: Jul 18, 1996 | RLD: No | RS: No | Type: RX